FAERS Safety Report 4382430-X (Version None)
Quarter: 2004Q2

REPORT INFORMATION
  Report Type: 
  Country: None (occurrence: None)
  Receive Date: 20040622
  Receipt Date: 20040602
  Transmission Date: 20050107
  Serious: Yes (Life-Threatening, Hospitalization)
  Sender: FDA-Public Use
  Company Number: US-AMGEN-US077744

PATIENT
  Sex: Male
  Weight: 20.8 kg

DRUGS (19)
  1. PEGFILGRASTIM [Suspect]
     Indication: CHEMOTHERAPY
     Route: 058
     Dates: start: 20040517
  2. NEURONTIN [Concomitant]
     Dates: start: 20040512
  3. CLOTRIMAZOLE [Concomitant]
     Dates: start: 20040520
  4. OXYCODONE [Concomitant]
     Dates: start: 20040519
  5. SENOKOT [Concomitant]
     Dates: start: 20040510
  6. TYLENOL [Concomitant]
     Dates: start: 20040521
  7. VANCOMYCIN [Concomitant]
     Dates: start: 20040524, end: 20040608
  8. MEROPENEM [Concomitant]
     Dates: start: 20040525, end: 20040608
  9. NILSTAT [Concomitant]
  10. FLAGYL [Concomitant]
     Dates: start: 20040525
  11. BENADRYL [Concomitant]
     Dates: start: 20040521
  12. ONDANSETRON [Concomitant]
  13. CEFEPIME [Concomitant]
     Dates: start: 20040521
  14. SEPTRA [Concomitant]
  15. ATIVAN [Concomitant]
  16. AMBISOME [Concomitant]
  17. VINCRISTINE [Concomitant]
     Dates: start: 20040514
  18. DOXORUBICIN HYDROCHLORIDE [Concomitant]
     Dates: start: 20040514
  19. CYCLOPHOSPHAMIDE [Concomitant]
     Dates: start: 20040514

REACTIONS (8)
  - ABDOMINAL DISTENSION [None]
  - ATELECTASIS [None]
  - CLOSTRIDIAL INFECTION [None]
  - ENTEROCOLITIS [None]
  - FEBRILE NEUTROPENIA [None]
  - PLEURAL EFFUSION [None]
  - TACHYCARDIA [None]
  - TACHYPNOEA [None]
